FAERS Safety Report 14660870 (Version 1)
Quarter: 2018Q1

REPORT INFORMATION
  Report Type: Spontaneous
  Country: TR (occurrence: TR)
  Receive Date: 20180320
  Receipt Date: 20180320
  Transmission Date: 20180509
  Serious: Yes (Other)
  Sender: FDA-Public Use
  Company Number: TR-MYLANLABS-2018M1016880

PATIENT
  Age: 96 Year
  Sex: Male

DRUGS (8)
  1. SODIUM HYDROGEN BICARBONATE [Concomitant]
     Indication: PRODUCT USED FOR UNKNOWN INDICATION
     Dosage: UNK
  2. THYROXIN [Concomitant]
     Active Substance: LEVOTHYROXINE
     Indication: PRODUCT USED FOR UNKNOWN INDICATION
     Dosage: UNK
  3. POTASSIUM CITRATE. [Concomitant]
     Active Substance: POTASSIUM CITRATE
     Indication: PRODUCT USED FOR UNKNOWN INDICATION
     Dosage: UNK
  4. MERCAPTAMINE [Suspect]
     Active Substance: CYSTEAMINE
     Indication: POLYURIA
  5. INDOMETHACIN                       /00003801/ [Concomitant]
     Active Substance: INDOMETHACIN
     Indication: PRODUCT USED FOR UNKNOWN INDICATION
     Dosage: UNK
  6. MERCAPTAMINE [Suspect]
     Active Substance: CYSTEAMINE
     Indication: POLYDIPSIA
  7. CALCITRIOL. [Concomitant]
     Active Substance: CALCITRIOL
     Indication: PRODUCT USED FOR UNKNOWN INDICATION
     Dosage: UNK
  8. MERCAPTAMINE [Suspect]
     Active Substance: CYSTEAMINE
     Indication: CYSTINOSIS
     Dosage: UNK

REACTIONS (5)
  - Hepatosplenomegaly [Unknown]
  - Rales [Unknown]
  - Cardiac murmur [Unknown]
  - Pulmonary hypertension [Recovering/Resolving]
  - Treatment noncompliance [Unknown]
